FAERS Safety Report 10431207 (Version 2)
Quarter: 2014Q3

REPORT INFORMATION
  Report Type: Spontaneous
  Country: CH (occurrence: CH)
  Receive Date: 20140904
  Receipt Date: 20140905
  Transmission Date: 20150326
  Serious: Yes (Hospitalization, Other)
  Sender: FDA-Public Use
  Company Number: CH-PFIZER INC-2014243493

PATIENT
  Age: 30 Year
  Sex: Female
  Weight: 47 kg

DRUGS (1)
  1. EFFEXOR [Suspect]
     Active Substance: VENLAFAXINE HYDROCHLORIDE
     Indication: DEPRESSION
     Dosage: 300 MG, 1X/DAY
     Route: 048
     Dates: start: 2013, end: 20140415

REACTIONS (16)
  - Fatigue [Unknown]
  - Myoclonus [Unknown]
  - Nystagmus [Unknown]
  - Tremor [Unknown]
  - Leukocytosis [Unknown]
  - Gait disturbance [Unknown]
  - Blood creatine phosphokinase increased [Unknown]
  - Serotonin syndrome [Unknown]
  - Speech disorder [Unknown]
  - Vertigo [Unknown]
  - Vomiting [Unknown]
  - Hyperreflexia [Unknown]
  - Pyrexia [Unknown]
  - Nausea [Unknown]
  - Muscle rigidity [Unknown]
  - Sinus tachycardia [Unknown]

NARRATIVE: CASE EVENT DATE: 20140415
